FAERS Safety Report 7396692-8 (Version None)
Quarter: 2011Q2

REPORT INFORMATION
  Report Type: 
  Country: None (occurrence: None)
  Receive Date: 20110406
  Receipt Date: 20110330
  Transmission Date: 20111010
  Serious: Yes (Hospitalization, Other)
  Sender: FDA-Public Use
  Company Number: PHHO2011BE03037

PATIENT

DRUGS (12)
  1. SINTROM [Suspect]
     Dosage: UNK
     Route: 048
     Dates: start: 20030901
  2. SYMBICORT [Concomitant]
  3. NOBITEN [Concomitant]
  4. DAFALGAN [Concomitant]
  5. ARANESP [Concomitant]
  6. OMEPRAZOLE [Concomitant]
  7. LETROZOLE [Suspect]
     Indication: BREAST CANCER
     Dosage: 2.5 MG, DAILY
     Route: 048
     Dates: start: 20090917
  8. ZOCOR [Concomitant]
  9. SIPRALEXA [Concomitant]
  10. AMLODIPINE BESYLATE [Concomitant]
  11. COVERSYL                                /BEL/ [Concomitant]
  12. TEMESTA [Concomitant]

REACTIONS (4)
  - HYPOXIA [None]
  - BRONCHOSPASM [None]
  - DYSPNOEA [None]
  - OVERDOSE [None]
